FAERS Safety Report 8780288 (Version 1)
Quarter: 2012Q4

REPORT INFORMATION
  Report Type: Spontaneous
  Country: CA (occurrence: None)
  Receive Date: 20120905
  Receipt Date: 20120905
  Transmission Date: 20130627
  Serious: Yes (Other)
  Sender: FDA-Public Use
  Company Number: None

PATIENT
  Sex: Male
  Weight: 83.92 kg

DRUGS (2)
  1. IRBESARTAN [Suspect]
     Indication: HYPERTENSION
     Dosage: once a day
     Dates: start: 201206, end: 201207
  2. WARFARIN [Suspect]
     Dosage: once a day
     Dates: start: 201206

REACTIONS (9)
  - Heart rate irregular [None]
  - Faeces discoloured [None]
  - Diarrhoea [None]
  - Headache [None]
  - Chromaturia [None]
  - Drug hypersensitivity [None]
  - Haemorrhage [None]
  - Haemorrhage subcutaneous [None]
  - Abdominal pain lower [None]
